FAERS Safety Report 8264756 (Version 4)
Quarter: 2013Q1

REPORT INFORMATION
  Report Type: Spontaneous
  Country: US (occurrence: US)
  Receive Date: 20111128
  Receipt Date: 20130208
  Transmission Date: 20140127
  Serious: Yes (Hospitalization)
  Sender: FDA-Public Use
  Company Number: US-GLAXOSMITHKLINE-B0764602A

PATIENT
  Age: 58 Year
  Sex: Male
  Weight: 85.5 kg

DRUGS (1)
  1. AVANDIA [Suspect]
     Indication: DIABETES MELLITUS
     Dosage: 8MG PER DAY
     Route: 048
     Dates: start: 200502, end: 201011

REACTIONS (3)
  - Angina pectoris [Not Recovered/Not Resolved]
  - Coronary artery occlusion [Unknown]
  - Coronary artery disease [Unknown]
